FAERS Safety Report 12191015 (Version 1)
Quarter: 2016Q1

REPORT INFORMATION
  Report Type: Spontaneous
  Country: HU (occurrence: HU)
  Receive Date: 20160318
  Receipt Date: 20160318
  Transmission Date: 20160526
  Serious: Yes (Hospitalization)
  Sender: FDA-Public Use
  Company Number: HU-ACTELION-A-CH2016-132820

PATIENT
  Age: 49 Year
  Sex: Female

DRUGS (6)
  1. REVATIO [Concomitant]
     Active Substance: SILDENAFIL CITRATE
     Indication: PULMONARY ARTERIAL HYPERTENSION
     Dosage: 20 MG, TID
     Route: 048
  2. OPSUMIT [Suspect]
     Active Substance: MACITENTAN
     Indication: PULMONARY ARTERIAL HYPERTENSION
     Dosage: 10 MG, OD
     Route: 048
     Dates: start: 20151016
  3. L-THYROXIN [Concomitant]
     Active Substance: LEVOTHYROXINE SODIUM
     Indication: HYPOTHYROIDISM
     Dosage: 25 ?G, UNK
     Route: 048
  4. PRELOW PLUS [Concomitant]
     Indication: HYPERTENSION
     Dosage: 50 MG, BID
     Route: 048
  5. SYNCUMAR [Concomitant]
     Active Substance: ACENOCOUMAROL
     Dosage: 2 MG, UNK
     Route: 048
  6. REMODULIN [Concomitant]
     Active Substance: TREPROSTINIL
     Indication: PULMONARY ARTERIAL HYPERTENSION
     Dosage: 20 NG/KG, PER MIN
     Route: 058
     Dates: start: 20160120

REACTIONS (7)
  - Red blood cell sedimentation rate increased [Recovering/Resolving]
  - Pneumonia [Recovering/Resolving]
  - Cough [Recovering/Resolving]
  - C-reactive protein increased [Recovering/Resolving]
  - Chest pain [Recovering/Resolving]
  - White blood cell count increased [Recovering/Resolving]
  - Pyrexia [Recovering/Resolving]

NARRATIVE: CASE EVENT DATE: 20160308
